FAERS Safety Report 11713769 (Version 7)
Quarter: 2017Q1

REPORT INFORMATION
  Report Type: Spontaneous
  Country: US (occurrence: US)
  Receive Date: 20151109
  Receipt Date: 20170110
  Transmission Date: 20170428
  Serious: Yes (Other)
  Sender: FDA-Public Use
  Company Number: PHEH2015US022967

PATIENT
  Sex: Female
  Weight: 58.96 kg

DRUGS (3)
  1. ONDANSETRON HYDROCHLORIDE. [Suspect]
     Active Substance: ONDANSETRON HYDROCHLORIDE
     Indication: PRODUCT USED FOR UNKNOWN INDICATION
     Dosage: UNK
     Route: 065
     Dates: start: 201209, end: 201303
  2. ZOFRAN [Suspect]
     Active Substance: ONDANSETRON HYDROCHLORIDE
     Indication: VOMITING IN PREGNANCY
     Dosage: AS NEEDED (PRN)
     Route: 048
     Dates: start: 201209, end: 201304
  3. ONDANSETRON HYDROCHLORIDE. [Suspect]
     Active Substance: ONDANSETRON HYDROCHLORIDE
     Indication: PRODUCT USED FOR UNKNOWN INDICATION
     Dosage: UNK
     Route: 048
     Dates: start: 201209, end: 201303

REACTIONS (10)
  - Proteinuria [Unknown]
  - Anxiety [Unknown]
  - Scar [Unknown]
  - Maternal exposure during pregnancy [Unknown]
  - Injury [Unknown]
  - Hypertension [Unknown]
  - Anhedonia [Unknown]
  - Product use issue [Unknown]
  - Pain [Unknown]
  - Emotional distress [Unknown]
